FAERS Safety Report 4729932-1 (Version None)
Quarter: 2005Q3

REPORT INFORMATION
  Report Type: 
  Country: None (occurrence: None)
  Receive Date: 20050729
  Receipt Date: 20050729
  Transmission Date: 20060218
  Serious: No
  Sender: FDA-Public Use
  Company Number: None

PATIENT
  Age: 74 Year
  Sex: Male
  Weight: 99 kg

DRUGS (1)
  1. FERROUS SULFATE 325 MG PO GOLDINE [Suspect]
     Indication: ANAEMIA
     Dosage: PO 325 MG TID
     Route: 048
     Dates: start: 20040921, end: 20041111

REACTIONS (1)
  - SERUM FERRITIN INCREASED [None]
